FAERS Safety Report 10098069 (Version 2)
Quarter: 2014Q3

REPORT INFORMATION
  Report Type: Spontaneous
  Country: GB (occurrence: None)
  Receive Date: 20140421
  Receipt Date: 20140811
  Transmission Date: 20150326
  Serious: Yes (Disabling)
  Sender: FDA-Public Use
  Company Number: AUR-APL-2014-04584

PATIENT
  Age: 49 Year
  Sex: Female
  Weight: 60.4 kg

DRUGS (9)
  1. HYDROXYZINE (HYDROXYZINE) [Concomitant]
     Active Substance: HYDROXYZINE HYDROCHLORIDE
  2. BETNOVATE (BETAMETHASONE VALERATE) [Concomitant]
  3. CITALOPRAM (CITALOPRAM) [Concomitant]
     Active Substance: CITALOPRAM HYDROBROMIDE
  4. MIRTAZAPINE FILM-COATED TABLETS 15MG (MIRTAZAPINE) FILM-COATED TABLET, 15MG [Suspect]
     Active Substance: MIRTAZAPINE
     Indication: PRODUCT USED FOR UNKNOWN INDICATION
     Dates: start: 20140214, end: 20140326
  5. LANSOPRAZOLE (LANSOPRAZOLE) [Concomitant]
     Active Substance: LANSOPRAZOLE
  6. CETIRIZINE (CETIRIZINE) [Concomitant]
     Active Substance: CETIRIZINE HYDROCHLORIDE
  7. DIPROBASE (DIPROBASE /01132701/) [Concomitant]
  8. CLOBETASOL PROPIONATE (CLOBETASOL PROPIONATE) [Concomitant]
  9. FLUCLOXANILLIN (FLUCLOXACILLIN) [Concomitant]

REACTIONS (5)
  - Eye pain [None]
  - Dry skin [None]
  - Dermatitis allergic [None]
  - Headache [None]
  - Skin exfoliation [None]

NARRATIVE: CASE EVENT DATE: 20140301
